FAERS Safety Report 9777120 (Version 1)
Quarter: 2013Q4

REPORT INFORMATION
  Report Type: Report from Study
  Country: GR (occurrence: GR)
  Receive Date: 20131221
  Receipt Date: 20131221
  Transmission Date: 20140711
  Serious: Yes (Other)
  Sender: FDA-Public Use
  Company Number: GR-ROCHE-1321582

PATIENT
  Sex: 0

DRUGS (1)
  1. RITUXIMAB [Suspect]
     Indication: THROMBOTIC THROMBOCYTOPENIC PURPURA
     Route: 042

REACTIONS (4)
  - Bronchopulmonary aspergillosis [Unknown]
  - Interstitial lung disease [Unknown]
  - Neutropenia [Unknown]
  - Off label use [Unknown]
